FAERS Safety Report 4791703-8 (Version None)
Quarter: 2005Q4

REPORT INFORMATION
  Report Type: 
  Country: None (occurrence: None)
  Receive Date: 20051007
  Receipt Date: 20050927
  Transmission Date: 20060501
  Serious: Yes (Disabling)
  Sender: FDA-Public Use
  Company Number: JP-JPN-A20052296

PATIENT
  Age: 69 Year
  Sex: Female

DRUGS (2)
  1. FLUTIDE DISKUS [Suspect]
     Indication: ASTHMA
     Route: 048
  2. ONON [Concomitant]
     Indication: ASTHMA
     Route: 048

REACTIONS (1)
  - PULMONARY TUBERCULOSIS [None]
